FAERS Safety Report 11915554 (Version 1)
Quarter: 2016Q1

REPORT INFORMATION
  Report Type: Spontaneous
  Country: US (occurrence: None)
  Receive Date: 20160113
  Receipt Date: 20160113
  Transmission Date: 20160526
  Serious: Yes (Other)
  Sender: FDA-Public Use
  Company Number: None

PATIENT
  Age: 69 Year
  Sex: Male
  Weight: 73.48 kg

DRUGS (5)
  1. CALCIUM ASCORBATE [Concomitant]
     Active Substance: CALCIUM ASCORBATE
  2. CIPROFLOXACIN. [Suspect]
     Active Substance: CIPROFLOXACIN
     Indication: URINARY TRACT INFECTION
     Route: 048
     Dates: start: 20130503, end: 20130515
  3. CIPROFLOXACIN. [Suspect]
     Active Substance: CIPROFLOXACIN
     Indication: KIDNEY INFECTION
     Route: 048
     Dates: start: 20130503, end: 20130515
  4. ASPIRIN. [Concomitant]
     Active Substance: ASPIRIN
  5. COQ10 [Concomitant]
     Active Substance: UBIDECARENONE

REACTIONS (7)
  - Pruritus [None]
  - Asthenia [None]
  - Malaise [None]
  - Dysgeusia [None]
  - Cognitive disorder [None]
  - Urticaria [None]
  - Arrhythmia [None]

NARRATIVE: CASE EVENT DATE: 20130503
